FAERS Safety Report 9617314 (Version 2)
Quarter: 2013Q4

REPORT INFORMATION
  Report Type: Spontaneous
  Country: CA (occurrence: CA)
  Receive Date: 20131011
  Receipt Date: 20131024
  Transmission Date: 20140711
  Serious: Yes (Other)
  Sender: FDA-Public Use
  Company Number: US-BRISTOL-MYERS SQUIBB COMPANY-19508001

PATIENT
  Age: 80 Year
  Sex: Male

DRUGS (3)
  1. ELIQUIS [Suspect]
     Route: 048
     Dates: start: 20130425, end: 20130627
  2. METOPROLOL [Concomitant]
  3. FUROSEMIDE [Concomitant]

REACTIONS (1)
  - Jaundice [Recovered/Resolved]
